FAERS Safety Report 23955852 (Version 1)
Quarter: 2024Q2

REPORT INFORMATION
  Report Type: Other
  Country: FR (occurrence: FR)
  Receive Date: 20240610
  Receipt Date: 20240610
  Transmission Date: 20240716
  Serious: Yes (Hospitalization)
  Sender: FDA-Public Use
  Company Number: None

PATIENT

DRUGS (4)
  1. BISOPROLOL [Suspect]
     Active Substance: BISOPROLOL\BISOPROLOL FUMARATE
     Indication: Angina unstable
     Dosage: 2.5 MILLIGRAM, QD
     Route: 048
     Dates: start: 20240331, end: 20240413
  2. RAMIPRIL [Suspect]
     Active Substance: RAMIPRIL
     Indication: Angina unstable
     Dosage: 2 MILLIGRAM, QD
     Route: 048
     Dates: start: 20240407, end: 20240412
  3. IOBITRIDOL [Suspect]
     Active Substance: IOBITRIDOL
     Indication: Angiocardiogram
     Dosage: 1 DOSAGE FORM 1 TOTAL
     Route: 042
     Dates: start: 20240407, end: 20240407
  4. TICAGRELOR [Suspect]
     Active Substance: TICAGRELOR
     Indication: Angioplasty
     Dosage: 180 MILLIGRAM, QD
     Route: 048
     Dates: start: 20240407, end: 20240416

REACTIONS (2)
  - Eosinophilia [Recovered/Resolved]
  - Rash maculo-papular [Recovered/Resolved]

NARRATIVE: CASE EVENT DATE: 20240414
